FAERS Safety Report 6014411-4 (Version None)
Quarter: 2008Q4

REPORT INFORMATION
  Report Type: 
  Country: None (occurrence: None)
  Receive Date: 20081219
  Receipt Date: 20080527
  Transmission Date: 20090506
  Serious: No
  Sender: FDA-Public Use
  Company Number: A0731531A

PATIENT
  Sex: Male

DRUGS (2)
  1. AVODART [Suspect]
     Indication: BENIGN PROSTATIC HYPERPLASIA
     Route: 048
  2. CONCURRENT MEDICATIONS [Concomitant]

REACTIONS (1)
  - DIARRHOEA [None]
